FAERS Safety Report 12689368 (Version 2)
Quarter: 2016Q4

REPORT INFORMATION
  Report Type: Report from Study
  Country: BR (occurrence: BR)
  Receive Date: 20160826
  Receipt Date: 20161026
  Transmission Date: 20170207
  Serious: Yes (Other)
  Sender: FDA-Public Use
  Company Number: ALCN2016BR005878

PATIENT
  Sex: Male

DRUGS (1)
  1. VITALUX PLUS [Suspect]
     Active Substance: VITAMINS
     Indication: VISUAL ACUITY REDUCED
     Route: 065

REACTIONS (2)
  - Retinal degeneration [Unknown]
  - Blindness [Unknown]
